FAERS Safety Report 5179189-5 (Version None)
Quarter: 2006Q4

REPORT INFORMATION
  Report Type: 
  Country: None (occurrence: None)
  Receive Date: 20061219
  Receipt Date: 20061214
  Transmission Date: 20070319
  Serious: Yes (Other)
  Sender: FDA-Public Use
  Company Number: US-GLAXOSMITHKLINE-A0631535A

PATIENT
  Age: 50 Year
  Sex: Female

DRUGS (13)
  1. COMMIT [Suspect]
     Route: 002
     Dates: start: 20060715, end: 20060715
  2. DILANTIN [Suspect]
  3. COFFEE [Suspect]
  4. TOBACCO [Suspect]
  5. XANAX [Concomitant]
  6. EFFEXOR XR [Concomitant]
     Dates: end: 20060728
  7. VALTREX [Concomitant]
  8. BACLOFEN [Concomitant]
  9. KLONOPIN [Concomitant]
  10. SINGULAIR [Concomitant]
  11. PREVACID [Concomitant]
  12. FLOMAX [Concomitant]
  13. TEGRETOL [Concomitant]

REACTIONS (12)
  - ANTICONVULSANT TOXICITY [None]
  - BLOOD SODIUM DECREASED [None]
  - DIZZINESS [None]
  - DRUG TOXICITY [None]
  - FEELING ABNORMAL [None]
  - HEADACHE [None]
  - MIGRAINE [None]
  - SENSORY DISTURBANCE [None]
  - TENSION [None]
  - UTERINE POLYP [None]
  - VAGINAL HAEMORRHAGE [None]
  - VASOCONSTRICTION [None]
